FAERS Safety Report 7421572-9 (Version None)
Quarter: 2011Q2

REPORT INFORMATION
  Report Type: 
  Country: None (occurrence: None)
  Receive Date: 20110418
  Receipt Date: 20110412
  Transmission Date: 20111010
  Serious: Yes (Death)
  Sender: FDA-Public Use
  Company Number: PHHY2011BR31130

PATIENT
  Age: 16 Year
  Sex: Male

DRUGS (3)
  1. CARBAMAZEPINE [Suspect]
     Indication: EPILEPSY
     Dosage: 1200 MG, DAILY
  2. PHENOBARBITAL SRT [Suspect]
     Indication: EPILEPSY
     Dosage: 200 MG, DAILY
  3. CLOBAZAM [Suspect]
     Indication: EPILEPSY
     Dosage: 40 MG, DAILY

REACTIONS (5)
  - SUDDEN UNEXPLAINED DEATH IN EPILEPSY [None]
  - COMPLEX PARTIAL SEIZURES [None]
  - TACHYCARDIA [None]
  - BRADYCARDIA [None]
  - GRAND MAL CONVULSION [None]
